FAERS Safety Report 12966455 (Version 1)
Quarter: 2016Q4

REPORT INFORMATION
  Report Type: Other
  Country: GB (occurrence: US)
  Receive Date: 20161122
  Receipt Date: 20161122
  Transmission Date: 20170207
  Serious: Yes (Other)
  Sender: FDA-Public Use
  Company Number: US-INTERNATIONAL MEDICATION SYSTEMS, LIMITED-1059976

PATIENT
  Age: 37 Year
  Sex: Male

DRUGS (1)
  1. MORPHINE TABLETS [Suspect]
     Active Substance: MORPHINE
     Route: 042

REACTIONS (2)
  - Pericarditis [Unknown]
  - Wrong technique in product usage process [Unknown]
